FAERS Safety Report 22207969 (Version 1)
Quarter: 2023Q2

REPORT INFORMATION
  Report Type: Spontaneous
  Country: ES (occurrence: ES)
  Receive Date: 20230413
  Receipt Date: 20230413
  Transmission Date: 20230722
  Serious: Yes (Other)
  Sender: FDA-Public Use
  Company Number: None

PATIENT
  Age: 63 Year
  Sex: Male

DRUGS (7)
  1. LEVOFLOXACIN [Suspect]
     Active Substance: LEVOFLOXACIN
     Indication: Respiratory tract infection
     Dosage: UNIT DOSE 500 MG
     Route: 042
     Dates: start: 20230218, end: 20230218
  2. HIDROFEROL 0,266 mg SOLUTION ORAL , 10 drinkable ampoules 1,5 ml [Concomitant]
     Indication: Product used for unknown indication
     Dosage: UNIT DOSE - 0.26 MG?FORM OF ADMIN ORAL SOLUTION
     Route: 048
     Dates: start: 20211102
  3. OMEPRAZOL CINFAMED 20 mg gastro resistant capsule hard EFG , 28 capsul [Concomitant]
     Indication: Product used for unknown indication
     Dosage: FORM OF ADMIN - GASTRO RESISTANT CAPSULE HARD
     Route: 048
     Dates: start: 20220513
  4. PALEXIA RETARD 50 mg PROLONGED-RELEASE TABLETS, 60 tablets [Concomitant]
     Indication: Product used for unknown indication
     Dosage: FORM OF ADMIN PROLONGED-RELEASED TABLET
     Route: 048
     Dates: start: 20220513
  5. ADIRO 100 MG gastro resistant tablet EFG, 30 TABLETS(PVC- Aluminio) [Concomitant]
     Indication: Product used for unknown indication
     Dosage: UNIT DOSE - 100 MG?FORM OF ADMIN GASTRO RESISTANT TABLET
     Route: 048
     Dates: start: 20220401
  6. PREGABALIN NORMON 100 MG EFG HARD CAPSULES , 84 capsules (BLISTER ALUM [Concomitant]
     Indication: Product used for unknown indication
     Dosage: UNIT DOSE - 100 MG?FORM OF ADMIN CAPSULE, HARD
     Route: 048
     Dates: start: 20220104
  7. ATORVASTATIN CINFA 40 mg FILM-COATED TABLETS EFG, 28 tablets [Concomitant]
     Indication: Product used for unknown indication
     Dosage: FORM OF ADMIN FILM-COATED TABLET
     Route: 048
     Dates: start: 20220401

REACTIONS (3)
  - PO2 decreased [Recovered/Resolved]
  - Pruritus [Recovered/Resolved]
  - Hypotension [Recovered/Resolved]

NARRATIVE: CASE EVENT DATE: 20230218
